FAERS Safety Report 15294789 (Version 1)
Quarter: 2018Q3

REPORT INFORMATION
  Report Type: Spontaneous
  Country: JP (occurrence: JP)
  Receive Date: 20180820
  Receipt Date: 20180820
  Transmission Date: 20181010
  Serious: Yes (Other)
  Sender: FDA-Public Use
  Company Number: JP-BAYER-2018-149882

PATIENT
  Age: 60 Year
  Sex: Female

DRUGS (6)
  1. CILOSTAZOL. [Interacting]
     Active Substance: CILOSTAZOL
     Indication: PERIPHERAL ARTERIAL OCCLUSIVE DISEASE
     Route: 048
  2. BAYASPIRIN 100 MG [Interacting]
     Active Substance: ASPIRIN
     Indication: ANGINA PECTORIS
  3. BAYASPIRIN 100 MG [Suspect]
     Active Substance: ASPIRIN
     Indication: PERIPHERAL ARTERIAL OCCLUSIVE DISEASE
     Route: 048
  4. HEPARIN SODIUM. [Interacting]
     Active Substance: HEPARIN SODIUM
     Indication: DIALYSIS
  5. NAFAMOSTAT MESILATE [Concomitant]
     Active Substance: NAFAMOSTAT MESYLATE
     Indication: DIALYSIS
  6. CILOSTAZOL. [Interacting]
     Active Substance: CILOSTAZOL
     Indication: ANGINA PECTORIS

REACTIONS (8)
  - Tractional retinal detachment [Recovered/Resolved]
  - Vitreous haemorrhage [Recovered/Resolved]
  - Vitreous haemorrhage [Recovered/Resolved]
  - Hyphaema [Recovered/Resolved]
  - Posterior capsule opacification [None]
  - Hyphaema [Recovered/Resolved]
  - Angle closure glaucoma [Recovered/Resolved]
  - Labelled drug-drug interaction medication error [None]

NARRATIVE: CASE EVENT DATE: 200111
